FAERS Safety Report 8509460 (Version 2)
Quarter: 2013Q2

REPORT INFORMATION
  Report Type: Spontaneous
  Country: US (occurrence: US)
  Receive Date: 20120413
  Receipt Date: 20130626
  Transmission Date: 20140414
  Serious: No
  Sender: FDA-Public Use
  Company Number: US-BIOGENIDEC-2012BI012063

PATIENT
  Age: 30 Year
  Sex: Female

DRUGS (1)
  1. TYSABRI [Suspect]
     Indication: MULTIPLE SCLEROSIS
     Route: 042
     Dates: start: 20120125, end: 20121212

REACTIONS (4)
  - Hypersomnia [Not Recovered/Not Resolved]
  - Fatigue [Unknown]
  - Multiple sclerosis [Not Recovered/Not Resolved]
  - Headache [Unknown]
